FAERS Safety Report 19091148 (Version 1)
Quarter: 2021Q2

REPORT INFORMATION
  Report Type: Other
  Country: FR (occurrence: FR)
  Receive Date: 20210405
  Receipt Date: 20210405
  Transmission Date: 20210717
  Serious: Yes (Death)
  Sender: FDA-Public Use
  Company Number: FR-CADILA HEALTHCARE LIMITED-FR-ZYDUS-063872

PATIENT

DRUGS (11)
  1. EZETROL [Concomitant]
     Active Substance: EZETIMIBE
     Indication: PRODUCT USED FOR UNKNOWN INDICATION
     Dosage: UNK
     Route: 065
  2. LANTUS [Concomitant]
     Active Substance: INSULIN GLARGINE
     Indication: PRODUCT USED FOR UNKNOWN INDICATION
     Dosage: UNK
     Route: 065
  3. PLAVIX [Concomitant]
     Active Substance: CLOPIDOGREL BISULFATE
     Indication: PRODUCT USED FOR UNKNOWN INDICATION
     Dosage: UNK
     Route: 065
  4. KREDEX [Suspect]
     Active Substance: CARVEDILOL
     Indication: HYPERTENSION
     Dosage: 0.5 DOSAGE FORM, QD
     Route: 048
     Dates: start: 201510
  5. CALCIPARINE [Concomitant]
     Active Substance: HEPARIN CALCIUM
     Indication: PRODUCT USED FOR UNKNOWN INDICATION
     Dosage: UNK
     Route: 065
  6. TRAMADOL. [Concomitant]
     Active Substance: TRAMADOL
     Indication: PRODUCT USED FOR UNKNOWN INDICATION
     Dosage: UNK
     Route: 065
  7. INEXIUM [ESOMEPRAZOLE SODIUM] [Concomitant]
     Active Substance: ESOMEPRAZOLE SODIUM
     Indication: PRODUCT USED FOR UNKNOWN INDICATION
     Dosage: UNK
     Route: 065
  8. TAHOR [Concomitant]
     Active Substance: ATORVASTATIN CALCIUM
     Indication: PRODUCT USED FOR UNKNOWN INDICATION
     Dosage: UNK
     Route: 065
  9. RAMIPRIL. [Suspect]
     Active Substance: RAMIPRIL
     Indication: HYPERTENSION
     Dosage: 1 DOSAGE FORM, QD
     Route: 048
     Dates: start: 20151107, end: 20151112
  10. CHIBRO?PROSCAR [Concomitant]
     Active Substance: FINASTERIDE
     Indication: PRODUCT USED FOR UNKNOWN INDICATION
     Dosage: UNK
     Route: 065
  11. KARDEGIC [Concomitant]
     Active Substance: ASPIRIN DL-LYSINE
     Indication: PRODUCT USED FOR UNKNOWN INDICATION
     Dosage: UNK
     Route: 065

REACTIONS (2)
  - Hyperkalaemia [Fatal]
  - Sinoatrial block [Fatal]

NARRATIVE: CASE EVENT DATE: 20151112
